FAERS Safety Report 9403757 (Version 1)
Quarter: 2013Q3

REPORT INFORMATION
  Report Type: Spontaneous
  Country: US (occurrence: None)
  Receive Date: 20130715
  Receipt Date: 20130715
  Transmission Date: 20140515
  Serious: Yes (Hospitalization)
  Sender: FDA-Public Use
  Company Number: None

PATIENT
  Age: 51 Year
  Sex: Female

DRUGS (2)
  1. DEPO-MEDROL [Suspect]
     Route: 030
     Dates: start: 20130521, end: 20130521
  2. KENALOG [Suspect]
     Route: 030
     Dates: start: 20130521, end: 20130521

REACTIONS (2)
  - Cellulitis [None]
  - Injection site abscess [None]
